FAERS Safety Report 17289471 (Version 1)
Quarter: 2020Q1

REPORT INFORMATION
  Report Type: Spontaneous
  Country: US (occurrence: US)
  Receive Date: 20200120
  Receipt Date: 20200120
  Transmission Date: 20200409
  Serious: Yes (Hospitalization)
  Sender: FDA-Public Use
  Company Number: US-ELI_LILLY_AND_COMPANY-US202001005652

PATIENT
  Age: 62 Year
  Sex: Male

DRUGS (1)
  1. HUMALOG [Suspect]
     Active Substance: INSULIN LISPRO
     Indication: PRODUCT USED FOR UNKNOWN INDICATION
     Dosage: 100 U, UNKNOWN
     Route: 058

REACTIONS (6)
  - Blood glucose increased [Not Recovered/Not Resolved]
  - Neuropathy peripheral [Not Recovered/Not Resolved]
  - Abdominal discomfort [Recovering/Resolving]
  - Gastric ulcer [Recovering/Resolving]
  - Insulin resistance [Recovering/Resolving]
  - Gastrointestinal disorder [Recovering/Resolving]
